FAERS Safety Report 8371432 (Version 3)
Quarter: 2015Q4

REPORT INFORMATION
  Report Type: Spontaneous
  Country: US (occurrence: US)
  Receive Date: 20120131
  Receipt Date: 20151130
  Transmission Date: 20160305
  Serious: Yes (Life-Threatening, Hospitalization, Other)
  Sender: FDA-Public Use
  Company Number: US-BAYER-2012-009125

PATIENT
  Age: 25 Year
  Sex: Female
  Weight: 50.79 kg

DRUGS (5)
  1. GABAPENTIN. [Concomitant]
     Active Substance: GABAPENTIN
     Dosage: UNK
     Dates: start: 20080918
  2. TRAMADOL. [Concomitant]
     Active Substance: TRAMADOL
     Dosage: UNK
     Dates: start: 20080918
  3. YAZ [Suspect]
     Active Substance: DROSPIRENONE\ETHINYL ESTRADIOL
     Indication: CONTRACEPTION
  4. YAZ [Suspect]
     Active Substance: DROSPIRENONE\ETHINYL ESTRADIOL
     Indication: MENSTRUAL DISORDER
     Dosage: UNK
     Dates: start: 200706, end: 200903
  5. TRI-PREVIFEM [Concomitant]
     Active Substance: ETHINYL ESTRADIOL\NORGESTIMATE
     Dosage: UNK
     Dates: start: 20080725

REACTIONS (11)
  - Gallbladder disorder [None]
  - Basedow^s disease [None]
  - Pain [None]
  - Subarachnoid haemorrhage [None]
  - Injury [None]
  - Deformity [None]
  - Embolism arterial [None]
  - Biliary colic [None]
  - Anxiety [None]
  - Pharyngitis streptococcal [None]
  - Meningitis [None]

NARRATIVE: CASE EVENT DATE: 2008
